FAERS Safety Report 21681052 (Version 1)
Quarter: 2022Q4

REPORT INFORMATION
  Report Type: Spontaneous
  Country: US (occurrence: US)
  Receive Date: 20221205
  Receipt Date: 20221205
  Transmission Date: 20230113
  Serious: No
  Sender: FDA-Public Use
  Company Number: US-SA-SAC20221130001470

PATIENT
  Age: 68 Year
  Sex: Female

DRUGS (14)
  1. DUPIXENT [Suspect]
     Active Substance: DUPILUMAB
     Indication: Dermatitis atopic
     Dosage: 600 MG, 1X
     Route: 058
     Dates: start: 20221126, end: 20221126
  2. DEXILANT [Concomitant]
     Active Substance: DEXLANSOPRAZOLE
  3. ELIQUIS [Concomitant]
     Active Substance: APIXABAN
  4. FOLIC ACID [Concomitant]
     Active Substance: FOLIC ACID
  5. FROVATRIPTAN [Concomitant]
     Active Substance: FROVATRIPTAN
  6. LEUCOVORIN [Concomitant]
     Active Substance: LEUCOVORIN
  7. LISINOPRIL [Concomitant]
     Active Substance: LISINOPRIL
  8. METHOTREXATE [Concomitant]
     Active Substance: METHOTREXATE
  9. METOPROLOL SUCCINATE [Concomitant]
     Active Substance: METOPROLOL SUCCINATE
  10. OXYCODONE AND ACETAMINOPHEN [Concomitant]
     Active Substance: ACETAMINOPHEN\OXYCODONE HYDROCHLORIDE
  11. VITAMIN D NOS [Concomitant]
     Active Substance: VITAMIN D NOS
  12. PREDNISOLONE [Concomitant]
     Active Substance: PREDNISOLONE
  13. TRIAMCINOLONE [Concomitant]
     Active Substance: TRIAMCINOLONE
  14. TRIAMCINOLONE [Concomitant]
     Active Substance: TRIAMCINOLONE

REACTIONS (1)
  - Headache [Unknown]
